FAERS Safety Report 8018857-4 (Version None)
Quarter: 2012Q1

REPORT INFORMATION
  Report Type: 
  Country: None (occurrence: None)
  Receive Date: 20120103
  Receipt Date: 20111220
  Transmission Date: 20120608
  Serious: Yes (Hospitalization)
  Sender: FDA-Public Use
  Company Number: US-UCBSA-048085

PATIENT
  Age: 29 Year
  Sex: Female
  Weight: 65.77 kg

DRUGS (13)
  1. FLAGYL [Concomitant]
     Indication: CROHN'S DISEASE
     Route: 048
     Dates: start: 20110701
  2. INFLIXIMAB [Concomitant]
     Indication: CROHN'S DISEASE
     Dates: start: 20000101, end: 20110101
  3. MULTI-VITAMIN [Concomitant]
     Indication: CROHN'S DISEASE
  4. CLINDAMYCIN [Concomitant]
  5. TRAMADOL HCL [Concomitant]
  6. VITAMIN D [Concomitant]
  7. CALCITRIOL [Concomitant]
  8. SYNTHROID [Concomitant]
     Indication: CROHN'S DISEASE
  9. CIPROFLOXACIN [Concomitant]
     Indication: CROHN'S DISEASE
     Route: 048
     Dates: start: 20110701
  10. CIMZIA [Suspect]
     Indication: CROHN'S DISEASE
     Route: 058
     Dates: start: 20110716
  11. CALCIUM ACETATE [Concomitant]
     Indication: CROHN'S DISEASE
  12. PREDNISONE TAB [Concomitant]
     Indication: CROHN'S DISEASE
     Dates: start: 19930101
  13. INVANZ [Concomitant]

REACTIONS (1)
  - CELLULITIS [None]
